FAERS Safety Report 17465916 (Version 1)
Quarter: 2020Q1

REPORT INFORMATION
  Report Type: Spontaneous
  Country: US (occurrence: US)
  Receive Date: 20200227
  Receipt Date: 20200227
  Transmission Date: 20200409
  Serious: No
  Sender: FDA-Public Use
  Company Number: US-ASTRAZENECA-2020SE19123

PATIENT
  Sex: Female
  Weight: 66.7 kg

DRUGS (2)
  1. SYMBICORT [Suspect]
     Active Substance: BUDESONIDE\FORMOTEROL FUMARATE DIHYDRATE
     Indication: CHRONIC OBSTRUCTIVE PULMONARY DISEASE
     Dosage: 80/4.5 MCG, 2 PUFFS, BID
     Route: 055
  2. ALBUTEROL. [Concomitant]
     Active Substance: ALBUTEROL
     Dosage: UNKNOWN
     Route: 065

REACTIONS (12)
  - Bronchitis [Unknown]
  - Pneumonia [Unknown]
  - Vomiting [Unknown]
  - Taste disorder [Unknown]
  - Obsessive-compulsive disorder [Unknown]
  - Wrong technique in device usage process [Unknown]
  - Fatigue [Unknown]
  - Blister [Unknown]
  - Syncope [Unknown]
  - Eye disorder [Unknown]
  - Device use issue [Unknown]
  - Incorrect dose administered [Unknown]
